FAERS Safety Report 7098141-6 (Version None)
Quarter: 2010Q4

REPORT INFORMATION
  Report Type: 
  Country: None (occurrence: None)
  Receive Date: 20101105
  Receipt Date: 20101101
  Transmission Date: 20110411
  Serious: Yes (Life-Threatening, Hospitalization, Other)
  Sender: FDA-Public Use
  Company Number: 2010MA004086

PATIENT
  Age: 48 Year
  Sex: Female

DRUGS (2)
  1. VENLAFAXINE HYDROCHLORIDE [Suspect]
     Indication: DEPRESSION
     Dosage: 75 MG;QD
  2. TRAZODONE (TRAZODONE) [Suspect]
     Indication: DEPRESSION
     Dosage: 200 MG;QD

REACTIONS (6)
  - ACUTE HEPATIC FAILURE [None]
  - ENCEPHALOPATHY [None]
  - HEPATITIS ACUTE [None]
  - HEPATOTOXICITY [None]
  - INTERNATIONAL NORMALISED RATIO INCREASED [None]
  - LIVER TRANSPLANT [None]
